FAERS Safety Report 7159205-1 (Version None)
Quarter: 2010Q4

REPORT INFORMATION
  Report Type: 
  Country: None (occurrence: None)
  Receive Date: 20101214
  Receipt Date: 20100813
  Transmission Date: 20110411
  Serious: No
  Sender: FDA-Public Use
  Company Number: US-ASTRAZENECA-2010SE38155

PATIENT
  Sex: Male

DRUGS (3)
  1. CRESTOR [Suspect]
     Indication: BLOOD CHOLESTEROL INCREASED
     Route: 048
     Dates: start: 20100501
  2. NIASPAN [Suspect]
     Indication: VASCULAR GRAFT
     Dates: start: 20100401, end: 20100501
  3. NIASPAN [Suspect]
     Dates: start: 20100501

REACTIONS (1)
  - GALLBLADDER PAIN [None]
